FAERS Safety Report 7137864-7 (Version None)
Quarter: 2010Q4

REPORT INFORMATION
  Report Type: 
  Country: None (occurrence: None)
  Receive Date: 20101103
  Receipt Date: 20100518
  Transmission Date: 20110411
  Serious: Yes (Hospitalization)
  Sender: FDA-Public Use
  Company Number: 2010S1000146

PATIENT
  Sex: Male
  Weight: 87 kg

DRUGS (14)
  1. CUBICIN [Suspect]
     Indication: CELLULITIS
     Dosage: 4  MG/KG;Q24H; IV
     Route: 042
     Dates: start: 20091016, end: 20091024
  2. ATORVASTATIN (ATORVASTATIN) [Suspect]
     Indication: CARDIAC DISORDER
     Dosage: 20 MG
     Dates: end: 20091025
  3. NOVORAPID [Concomitant]
  4. WARFARIN [Concomitant]
  5. OMEPRAZOLE [Concomitant]
  6. CITALOPRAM HYDROBROMIDE [Concomitant]
  7. CALCIUM RESONIUM [Concomitant]
  8. CANDESARTAN [Concomitant]
  9. FUROSEMIDE [Concomitant]
  10. SULFINPYRAZONE [Concomitant]
  11. FERROUS SULFATE [Concomitant]
  12. GLICLAZIDE [Concomitant]
  13. LANTUS [Concomitant]
  14. CLINDAMYCIN [Concomitant]

REACTIONS (1)
  - BLOOD POTASSIUM INCREASED [None]
